FAERS Safety Report 25819138 (Version 3)
Quarter: 2025Q4

REPORT INFORMATION
  Report Type: Spontaneous
  Country: US (occurrence: US)
  Receive Date: 20250918
  Receipt Date: 20251215
  Transmission Date: 20260118
  Serious: No
  Sender: SANOFI AVENTIS
  Company Number: US-SA-2025SA277478

PATIENT
  Age: 7 Year
  Sex: Male
  Weight: 24.49 kg

DRUGS (11)
  1. DUPIXENT [Suspect]
     Active Substance: DUPILUMAB
     Indication: Eczema
     Dosage: 300 MG, QOW
     Route: 058
  2. DUPIXENT [Suspect]
     Active Substance: DUPILUMAB
     Indication: Dermatitis
     Dosage: 200 MG, QOW
     Route: 058
     Dates: start: 202105
  3. DUPIXENT [Suspect]
     Active Substance: DUPILUMAB
     Indication: Dermatitis atopic
  4. DUPIXENT [Suspect]
     Active Substance: DUPILUMAB
     Indication: Dyshidrotic eczema
  5. TRIAMCINOLONE ACETONIDE [Concomitant]
     Active Substance: TRIAMCINOLONE ACETONIDE
     Dosage: APPLY TO BODY, ARMS AND LEGS TWICE DAILY AS DIRECTED
     Dates: start: 20241122
  6. TRIAMCINOLONE ACETONIDE [Concomitant]
     Active Substance: TRIAMCINOLONE ACETONIDE
     Dosage: TWICE DAILY
     Dates: start: 20241122
  7. FLUOCINONIDE [Concomitant]
     Active Substance: FLUOCINONIDE
     Dosage: APPLY TO ARMS AND LEGS TWICE DAILY AS DIRECTED
     Dates: start: 20250807
  8. ZORYVE [Concomitant]
     Active Substance: ROFLUMILAST
     Indication: Dermatitis atopic
     Dosage: APPLY TO AREAS OF THE FACE DAILY AS DIRECTED
     Dates: start: 20250807
  9. ZORYVE [Concomitant]
     Active Substance: ROFLUMILAST
     Dosage: DAILY
     Dates: start: 20250807
  10. CETIRIZINE [Concomitant]
     Active Substance: CETIRIZINE HYDROCHLORIDE
     Dosage: UNK
     Dates: start: 20241122
  11. AZITHROMYCIN [Concomitant]
     Active Substance: AZITHROMYCIN
     Indication: Mycoplasma infection
     Dosage: UNK

REACTIONS (15)
  - Condition aggravated [Unknown]
  - Dry skin [Unknown]
  - Papule [Unknown]
  - Skin plaque [Unknown]
  - Blister [Unknown]
  - Pruritus [Unknown]
  - Rash [Unknown]
  - Dyshidrotic eczema [Not Recovered/Not Resolved]
  - Condition aggravated [Not Recovered/Not Resolved]
  - Dermatitis atopic [Not Recovered/Not Resolved]
  - Viral rash [Unknown]
  - Mycoplasma test positive [Unknown]
  - Swelling face [Unknown]
  - Urticaria [Unknown]
  - Product use in unapproved indication [Unknown]

NARRATIVE: CASE EVENT DATE: 20250101
